FAERS Safety Report 16804677 (Version 8)
Quarter: 2020Q2

REPORT INFORMATION
  Report Type: Spontaneous
  Country: US (occurrence: US)
  Receive Date: 20190913
  Receipt Date: 20200519
  Transmission Date: 20200713
  Serious: Yes (Hospitalization, Other)
  Sender: FDA-Public Use
  Company Number: US-PFIZER INC-2019320435

PATIENT
  Age: 57 Year
  Sex: Male

DRUGS (12)
  1. BENEFIX [Suspect]
     Active Substance: COAGULATION FACTOR IX RECOMBINANT HUMAN\ISOPROPYL ALCOHOL
     Indication: COAGULATION FACTOR IX LEVEL
  2. BENEFIX [Suspect]
     Active Substance: COAGULATION FACTOR IX RECOMBINANT HUMAN\ISOPROPYL ALCOHOL
     Indication: HAEMORRHAGE
  3. RIFAXIMIN. [Concomitant]
     Active Substance: RIFAXIMIN
     Dosage: 550 MG, 2X/DAY
     Route: 048
  4. BENEFIX [Suspect]
     Active Substance: COAGULATION FACTOR IX RECOMBINANT HUMAN\ISOPROPYL ALCOHOL
     Indication: HAEMARTHROSIS
  5. IDELVION [Concomitant]
     Active Substance: COAGULATION FACTOR IX RECOMBINANT HUMAN
     Indication: HAEMORRHAGE
     Dosage: 40 UNITS/KG IV PUSH ONCE PER WEEK)
     Route: 040
  6. LACTULOSE. [Concomitant]
     Active Substance: LACTULOSE
     Dosage: 30 IU, DAILY,(ADMINISTER 30 UNITS (3 ML INTRAVENOUSLY EVERY DAY AFTER FINAL SALINE)
  7. SODIUM CHLORIDE. [Concomitant]
     Active Substance: SODIUM CHLORIDE
     Dosage: 5 ML, DAILY
     Route: 042
  8. TYLENOL [Concomitant]
     Active Substance: ACETAMINOPHEN
     Dosage: 1000 MG, AS NEEDED
     Route: 048
  9. IDELVION [Concomitant]
     Active Substance: COAGULATION FACTOR IX RECOMBINANT HUMAN
     Dosage: 80 UNITS/KG IV PUSH
     Route: 040
  10. HEPARIN LOCK FLUSH [Concomitant]
     Active Substance: HEPARIN SODIUM
     Dosage: 10 IU/ML, UNK
  11. CEPHULAC [Concomitant]
     Active Substance: LACTULOSE
     Dosage: 10-20 G, 2X/DAY
     Route: 048
  12. IDELVION [Concomitant]
     Active Substance: COAGULATION FACTOR IX RECOMBINANT HUMAN
     Indication: HAEMORRHAGE
     Dosage: 40 UNITS/KG IV PUSH MOVE PROPHY DOSE EARLIER
     Route: 040

REACTIONS (2)
  - Expired product administered [Unknown]
  - Gastrointestinal haemorrhage [Unknown]
